FAERS Safety Report 15889458 (Version 2)
Quarter: 2019Q1

REPORT INFORMATION
  Report Type: Spontaneous
  Country: JP (occurrence: JP)
  Receive Date: 20190130
  Receipt Date: 20190306
  Transmission Date: 20190417
  Serious: Yes (Death, Other)
  Sender: FDA-Public Use
  Company Number: JP-ROCHE-2254785

PATIENT
  Age: 71 Year
  Sex: Male

DRUGS (1)
  1. XOFLUZA [Suspect]
     Active Substance: BALOXAVIR MARBOXIL
     Indication: INFLUENZA
     Route: 048
     Dates: start: 20190120, end: 20190120

REACTIONS (4)
  - Myocardial infarction [Fatal]
  - Haematochezia [Unknown]
  - Multiple organ dysfunction syndrome [Unknown]
  - Metabolic acidosis [Fatal]

NARRATIVE: CASE EVENT DATE: 20190121
